FAERS Safety Report 14953142 (Version 5)
Quarter: 2018Q3

REPORT INFORMATION
  Report Type: Report from Study
  Country: DE (occurrence: DE)
  Receive Date: 20180530
  Receipt Date: 20180905
  Transmission Date: 20181010
  Serious: Yes (Death, Hospitalization)
  Sender: FDA-Public Use
  Company Number: DE-CELGENEUS-DEU-20180506303

PATIENT
  Age: 64 Year
  Sex: Male
  Weight: 76.6 kg

DRUGS (15)
  1. PROPRA [Concomitant]
     Indication: PRE-EXISTING DISEASE
     Dosage: 40 MILLIGRAM
     Route: 065
  2. PANTOZOL [Concomitant]
     Active Substance: PANTOPRAZOLE SODIUM
     Indication: PRE-EXISTING DISEASE
     Dosage: 40 MILLIGRAM
     Route: 065
  3. ABRAXANE [Suspect]
     Active Substance: PACLITAXEL
     Indication: NON-SMALL CELL LUNG CANCER
     Dosage: 100 MILLIGRAM/SQ. METER
     Route: 041
     Dates: start: 20180503, end: 20180503
  4. BEROTEC [Concomitant]
     Active Substance: FENOTEROL HYDROBROMIDE
     Indication: PRE-EXISTING DISEASE
     Route: 065
  5. ATMADISC FORTE [Concomitant]
     Active Substance: FLUTICASONE FUROATE\SALMETEROL XINAFOATE
     Indication: PRE-EXISTING DISEASE
     Dosage: 100 MICROGRAM
     Route: 065
  6. SPIRONOLACTON [Concomitant]
     Active Substance: SPIRONOLACTONE
     Indication: PRE-EXISTING DISEASE
     Dosage: 50 MILLIGRAM
     Route: 065
  7. ASPIRIN. [Concomitant]
     Active Substance: ASPIRIN
     Indication: PRE-EXISTING DISEASE
     Dosage: 100 MILLIGRAM
     Route: 065
  8. OPIPRAMOL [Concomitant]
     Active Substance: OPIPRAMOL
     Indication: PRE-EXISTING DISEASE
     Route: 065
  9. VELMETIA [Concomitant]
     Active Substance: METFORMIN\SITAGLIPTIN
     Indication: PRE-EXISTING DISEASE
     Route: 065
  10. PIPAMPERON [Concomitant]
     Active Substance: PIPAMPERONE HYDROCHLORIDE
     Indication: PRE-EXISTING DISEASE
     Dosage: 10 MILLILITER
     Route: 065
  11. RAMIPRIL. [Concomitant]
     Active Substance: RAMIPRIL
     Indication: PRE-EXISTING DISEASE
     Dosage: 5 MILLIGRAM
     Route: 065
  12. LANTUS [Concomitant]
     Active Substance: INSULIN GLARGINE
     Indication: PRE-EXISTING DISEASE
     Dosage: 30 IU (INTERNATIONAL UNIT)
     Route: 065
  13. HUMAN INSULIN [Concomitant]
     Active Substance: INSULIN HUMAN
     Indication: PRE-EXISTING DISEASE
     Route: 065
  14. CARBOPLATIN. [Suspect]
     Active Substance: CARBOPLATIN
     Indication: NON-SMALL CELL LUNG CANCER
     Route: 041
     Dates: start: 20180503, end: 20180509
  15. LOVASTATIN. [Concomitant]
     Active Substance: LOVASTATIN
     Indication: PRE-EXISTING DISEASE
     Dosage: 40 MILLIGRAM
     Route: 065

REACTIONS (1)
  - Neutropenic sepsis [Fatal]

NARRATIVE: CASE EVENT DATE: 20180512
